FAERS Safety Report 7771590-6 (Version None)
Quarter: 2011Q3

REPORT INFORMATION
  Report Type: 
  Country: None (occurrence: None)
  Receive Date: 20110922
  Receipt Date: 20110718
  Transmission Date: 20111222
  Serious: No
  Sender: FDA-Public Use
  Company Number: US-ASTRAZENECA-2011SE42791

PATIENT
  Age: 31 Year
  Sex: Female
  Weight: 43.1 kg

DRUGS (3)
  1. SEROQUEL [Suspect]
     Indication: BIPOLAR DISORDER
     Route: 048
     Dates: start: 20110101
  2. LEVOTHYROXINE SODIUM [Concomitant]
  3. CELEXA [Concomitant]

REACTIONS (5)
  - DRUG DOSE OMISSION [None]
  - ANGER [None]
  - ABNORMAL BEHAVIOUR [None]
  - EMOTIONAL DISORDER [None]
  - HALLUCINATIONS, MIXED [None]
